FAERS Safety Report 10881831 (Version 2)
Quarter: 2015Q2

REPORT INFORMATION
  Report Type: Report from Study
  Country: KR (occurrence: KR)
  Receive Date: 20150303
  Receipt Date: 20150508
  Transmission Date: 20150821
  Serious: Yes (Hospitalization)
  Sender: FDA-Public Use
  Company Number: KR-BAYER-2015-027683

PATIENT
  Age: 75 Year
  Sex: Female

DRUGS (2)
  1. NEXAVAR [Suspect]
     Active Substance: SORAFENIB
     Indication: METASTASES TO LUNG
  2. NEXAVAR [Suspect]
     Active Substance: SORAFENIB
     Indication: THYROID CANCER
     Dosage: 200 MG, BID
     Route: 048
     Dates: start: 20150210, end: 20150221

REACTIONS (7)
  - Therapeutic response unexpected [None]
  - Wound secretion [None]
  - Asthenia [None]
  - Rash generalised [Not Recovered/Not Resolved]
  - Fatigue [None]
  - Proctalgia [None]
  - Decreased appetite [None]

NARRATIVE: CASE EVENT DATE: 20150211
